FAERS Safety Report 5104201-9 (Version None)
Quarter: 2006Q3

REPORT INFORMATION
  Report Type: 
  Country: None (occurrence: None)
  Receive Date: 20060911
  Receipt Date: 20060823
  Transmission Date: 20061208
  Serious: Yes (Other)
  Sender: FDA-Public Use
  Company Number: JP200608005652

PATIENT
  Age: 55 Year
  Sex: Female

DRUGS (1)
  1. ZYPREXA [Suspect]
     Indication: CATATONIA
     Dosage: 20 MG, DAILY, (1/D), ORAL
     Route: 048

REACTIONS (7)
  - AGITATION [None]
  - CATATONIA [None]
  - CONDITION AGGRAVATED [None]
  - DISINHIBITION [None]
  - DRUG INEFFECTIVE [None]
  - HEPATIC FUNCTION ABNORMAL [None]
  - NEGATIVISM [None]
